FAERS Safety Report 8397786-0 (Version None)
Quarter: 2012Q2

REPORT INFORMATION
  Report Type: 
  Country: None (occurrence: None)
  Receive Date: 20120531
  Receipt Date: 20120523
  Transmission Date: 20120825
  Serious: Yes (Other)
  Sender: FDA-Public Use
  Company Number: GR-TEVA-332661ISR

PATIENT

DRUGS (9)
  1. METHOTREXATE [Suspect]
  2. CYTARABINE [Suspect]
  3. DAUNORUBICIN HCL [Suspect]
  4. THIOGUANINE [Suspect]
  5. DOXORUBICIN HCL [Suspect]
  6. VINCRISTINE [Suspect]
  7. CYCLOPHOSPHAMIDE [Suspect]
  8. PEG-ASPARAGINASE [Suspect]
  9. MERCAPTOPURINE [Suspect]

REACTIONS (4)
  - AUTOIMMUNE THYROIDITIS [None]
  - BLOOD THYROID STIMULATING HORMONE INCREASED [None]
  - SECONDARY HYPOTHYROIDISM [None]
  - HYPOTHYROIDISM [None]
